FAERS Safety Report 18526398 (Version 3)
Quarter: 2021Q1

REPORT INFORMATION
  Report Type: Spontaneous
  Country: AR (occurrence: AR)
  Receive Date: 20201120
  Receipt Date: 20210308
  Transmission Date: 20210419
  Serious: Yes (Life-Threatening, Other)
  Sender: FDA-Public Use
  Company Number: AR-PFIZER INC-2020455159

PATIENT
  Age: 52 Year
  Sex: Female

DRUGS (3)
  1. SOMAVERT [Suspect]
     Active Substance: PEGVISOMANT
     Dosage: COMPLETE DOSE
  2. SOMAVERT [Suspect]
     Active Substance: PEGVISOMANT
     Indication: ACROMEGALY
     Dosage: 20 MG, 7 TIMES PER WEEK
     Dates: start: 20070402
  3. SOMAVERT [Suspect]
     Active Substance: PEGVISOMANT
     Dosage: 10 MG, UNK
     Dates: start: 202009, end: 202011

REACTIONS (8)
  - Type 2 diabetes mellitus [Unknown]
  - Joint injury [Unknown]
  - Bone deformity [Unknown]
  - Hypersensitivity [Unknown]
  - Viral test positive [Unknown]
  - Off label use [Unknown]
  - Hypertension [Unknown]
  - Gait inability [Unknown]

NARRATIVE: CASE EVENT DATE: 20070402
